FAERS Safety Report 15248019 (Version 4)
Quarter: 2018Q3

REPORT INFORMATION
  Report Type: Report from Study
  Country: GE (occurrence: GE)
  Receive Date: 20180807
  Receipt Date: 20180913
  Transmission Date: 20181010
  Serious: Yes (Life-Threatening, Hospitalization, Other)
  Sender: FDA-Public Use
  Company Number: GE-ROCHE-2132100

PATIENT
  Age: 47 Year
  Sex: Male
  Weight: 87 kg

DRUGS (9)
  1. CARBOPLATIN. [Suspect]
     Active Substance: CARBOPLATIN
     Dosage: AUC 5.00
     Route: 042
     Dates: start: 20180131
  2. BLINDED TRILACICLIB [Suspect]
     Active Substance: TRILACICLIB
     Indication: SMALL CELL LUNG CANCER EXTENSIVE STAGE
     Route: 042
     Dates: start: 20171220
  3. CARBOPLATIN. [Suspect]
     Active Substance: CARBOPLATIN
     Indication: SMALL CELL LUNG CANCER EXTENSIVE STAGE
     Dosage: AUC 5.00
     Route: 042
     Dates: start: 20171220
  4. PREDNISOLONE. [Concomitant]
     Active Substance: PREDNISOLONE
     Dosage: ONCE
     Route: 048
     Dates: start: 20180518, end: 20180628
  5. CARBOPLATIN. [Suspect]
     Active Substance: CARBOPLATIN
     Dosage: AUC 5.00
     Route: 042
     Dates: start: 20180221
  6. ETOPOSIDE. [Suspect]
     Active Substance: ETOPOSIDE
     Indication: SMALL CELL LUNG CANCER EXTENSIVE STAGE
     Dosage: 21/DEC/2017, 22/DEC/2017, 10/JAN/2018, 11/JAN/2018, 12/JAN/2018, 31/JAN/2018, 01/FEB/2018, 02/FEB/20
     Route: 042
     Dates: start: 20171220
  7. BLINDED TRILACICLIB [Suspect]
     Active Substance: TRILACICLIB
     Dosage: 22/DEC/2017, 10/JAN/2018, 11/JAN/2018, 12/JAN/2018, 31/JAN/2018, 01/FEB/2018, 02/FEB/2018, 21/FEB201
     Route: 042
     Dates: start: 20171221
  8. CARBOPLATIN. [Suspect]
     Active Substance: CARBOPLATIN
     Dosage: AUC 5.00
     Route: 042
     Dates: start: 20180110
  9. ATEZOLIZUMAB. [Suspect]
     Active Substance: ATEZOLIZUMAB
     Indication: SMALL CELL LUNG CANCER EXTENSIVE STAGE
     Dosage: 10/JAN/2018, 31/JAN/2018, 21/FEB/2018, 14/MAR/2018, 04/APR/2018 AND 26/APR/2018
     Route: 042
     Dates: start: 20171220

REACTIONS (3)
  - Thrombocytopenia [Unknown]
  - Epistaxis [Not Recovered/Not Resolved]
  - Thrombocytopenia [Not Recovered/Not Resolved]

NARRATIVE: CASE EVENT DATE: 20180518
